FAERS Safety Report 9044037 (Version 1)
Quarter: 2013Q1

REPORT INFORMATION
  Report Type: Spontaneous
  Country: ES (occurrence: ES)
  Receive Date: 20130130
  Receipt Date: 20130130
  Transmission Date: 20140127
  Serious: Yes (Death, Other)
  Sender: FDA-Public Use
  Company Number: ES-JNJFOC-20130113615

PATIENT
  Sex: 0

DRUGS (2)
  1. DOXORUBICIN HYDROCHLORIDE (CAELYX) [Suspect]
     Indication: KAPOSI^S SARCOMA
     Route: 042
  2. ANTIRETROVIRAL MEDICATIONS [Suspect]
     Indication: KAPOSI^S SARCOMA
     Route: 065

REACTIONS (8)
  - Bacteraemia [Fatal]
  - Death [Fatal]
  - Tuberculosis [Fatal]
  - Primary effusion lymphoma [Fatal]
  - Non-Hodgkin^s lymphoma [Fatal]
  - Kaposi^s sarcoma [Fatal]
  - Kaposi^s sarcoma [Unknown]
  - Drug ineffective [Unknown]
